FAERS Safety Report 4498980-1 (Version None)
Quarter: 2004Q4

REPORT INFORMATION
  Report Type: 
  Country: None (occurrence: None)
  Receive Date: 20041110
  Receipt Date: 20041110
  Transmission Date: 20050328
  Serious: Yes (Death)
  Sender: FDA-Public Use
  Company Number: None

PATIENT
  Age: 33 Year
  Sex: Male
  Weight: 120 kg

DRUGS (2)
  1. CYTARABINE (ARA C DAY 1, DAY 3 DAY 5) [Suspect]
     Indication: ACUTE MYELOID LEUKAEMIA
     Dosage: 36 M/M2 Q 12 H IV
     Route: 042
     Dates: start: 20040922, end: 20040927
  2. NEUPOGEN 480 MCG SQ DAILY [Suspect]
     Indication: ACUTE MYELOID LEUKAEMIA
     Dosage: 480 MCG SQ DAILY
     Route: 058
     Dates: start: 20040929

REACTIONS (6)
  - ASTHENIA [None]
  - FATIGUE [None]
  - FEBRILE NEUTROPENIA [None]
  - RENAL FAILURE ACUTE [None]
  - SEPSIS [None]
  - SEPTIC SHOCK [None]
